FAERS Safety Report 6718337-X (Version None)
Quarter: 2010Q2

REPORT INFORMATION
  Report Type: 
  Country: None (occurrence: None)
  Receive Date: 20100510
  Receipt Date: 20100426
  Transmission Date: 20101027
  Serious: Yes (Hospitalization, Other)
  Sender: FDA-Public Use
  Company Number: FR-MYLANLABS-2010S1007093

PATIENT
  Age: 76 Year
  Sex: Female

DRUGS (3)
  1. STRONTIUM RANELATE [Suspect]
     Route: 065
  2. LANSOPRAZOLE [Suspect]
     Route: 065
  3. AMOXICILLIN [Suspect]
     Indication: PHARYNGITIS
     Route: 065

REACTIONS (1)
  - DRUG RASH WITH EOSINOPHILIA AND SYSTEMIC SYMPTOMS [None]
